FAERS Safety Report 6470535-9 (Version None)
Quarter: 2009Q4

REPORT INFORMATION
  Report Type: 
  Country: None (occurrence: None)
  Receive Date: 20091202
  Receipt Date: 20091202
  Transmission Date: 20100525
  Serious: Yes (Other)
  Sender: FDA-Public Use
  Company Number: None

PATIENT
  Age: 55 Year
  Sex: Female
  Weight: 61.2356 kg

DRUGS (2)
  1. CYMBALTA [Suspect]
     Indication: ANALGESIC THERAPY
     Dosage: 30 MG EVERY DAY PO
     Route: 048
     Dates: start: 20060101
  2. CYMBALTA [Suspect]
     Indication: DEPRESSION
     Dosage: 30 MG EVERY DAY PO
     Route: 048
     Dates: start: 20060101

REACTIONS (1)
  - WITHDRAWAL SYNDROME [None]
